FAERS Safety Report 14174292 (Version 2)
Quarter: 2018Q1

REPORT INFORMATION
  Report Type: Spontaneous
  Country: IT (occurrence: IT)
  Receive Date: 20171109
  Receipt Date: 20180316
  Transmission Date: 20180508
  Serious: Yes (Life-Threatening)
  Sender: FDA-Public Use
  Company Number: IT-PFIZER INC-2017480666

PATIENT
  Age: 34 Year
  Sex: Male
  Weight: 120 kg

DRUGS (5)
  1. QUETIAPINA TEVA [Suspect]
     Active Substance: QUETIAPINE
     Indication: BIPOLAR DISORDER
     Dosage: 15 DF, TOTAL
     Route: 048
     Dates: start: 20171024, end: 20171024
  2. LAROXYL [Suspect]
     Active Substance: AMITRIPTYLINE HYDROCHLORIDE
     Dosage: 20 GTT TOTAL
     Route: 048
     Dates: start: 20171024
  3. SEROQUEL [Suspect]
     Active Substance: QUETIAPINE FUMARATE
     Indication: BIPOLAR DISORDER
     Dosage: 10 DF, TOTAL
     Route: 048
     Dates: start: 20171024, end: 20171024
  4. LYRICA [Suspect]
     Active Substance: PREGABALIN
     Dosage: 2 DF, TOTAL
     Route: 048
     Dates: start: 20171024, end: 20171024
  5. DELORAZEPAM [Suspect]
     Active Substance: DELORAZEPAM
     Dosage: 26 GTT, TOTAL
     Route: 048
     Dates: start: 20171024

REACTIONS (4)
  - Sopor [Recovered/Resolved]
  - Motor dysfunction [Recovered/Resolved]
  - Drug abuse [Unknown]
  - Psychomotor retardation [Recovered/Resolved]

NARRATIVE: CASE EVENT DATE: 20171024
